FAERS Safety Report 6819492-3 (Version None)
Quarter: 2010Q3

REPORT INFORMATION
  Report Type: 
  Country: None (occurrence: None)
  Receive Date: 20100707
  Receipt Date: 20100623
  Transmission Date: 20110219
  Serious: Yes (Other)
  Sender: FDA-Public Use
  Company Number: PHHY2010AU30498

PATIENT
  Sex: Female
  Weight: 77 kg

DRUGS (13)
  1. ACLASTA [Suspect]
     Indication: OSTEOPOROTIC FRACTURE
     Dosage: 5 MG/100 ML
     Dates: start: 20100511
  2. CAPSAICIN [Concomitant]
     Dosage: 0.075%W/W, UNK
     Route: 061
  3. DURAGESIC-100 [Concomitant]
     Dosage: 25 MCG /HR (4.2 MG), EVERY 03 HR
     Route: 062
  4. ENDONE [Concomitant]
     Dosage: 5 MG, QID
     Route: 048
  5. FERROGRAD C [Concomitant]
     Dosage: 325 MG/500 MG, UNK
     Route: 048
  6. NEURONTIN [Concomitant]
     Dosage: 300 MG, TID
  7. OSTELIN [Concomitant]
     Dosage: 500 IU/600 MG, 02 NOCTE
     Route: 048
  8. VITAMIN D [Concomitant]
     Dosage: 600 MG, 02 NOCTE
     Route: 048
  9. CALCIUM CARBONATE [Concomitant]
  10. ACETAMINOPHEN [Concomitant]
     Dosage: 665 MG, TID
  11. PARIET [Concomitant]
     Dosage: 20 MG, ONE DAILY
     Route: 048
  12. QUININE SULFATE [Concomitant]
     Dosage: 300 MG, 1-2 NOCTE PRN
     Route: 048
  13. TEMAZEPAM [Concomitant]
     Dosage: 10 MG, 1-2 NOCTE
     Route: 048

REACTIONS (14)
  - ARTHRALGIA [None]
  - BLOOD CALCIUM DECREASED [None]
  - BLOOD CREATININE INCREASED [None]
  - GLOMERULAR FILTRATION RATE DECREASED [None]
  - GOUT [None]
  - HAEMATOCRIT DECREASED [None]
  - JOINT SWELLING [None]
  - MEAN CELL VOLUME INCREASED [None]
  - MEDIAN NERVE INJURY [None]
  - NAUSEA [None]
  - OEDEMA PERIPHERAL [None]
  - PAIN IN EXTREMITY [None]
  - PYREXIA [None]
  - RED BLOOD CELL COUNT DECREASED [None]
